FAERS Safety Report 21626214 (Version 1)
Quarter: 2022Q4

REPORT INFORMATION
  Report Type: Report from Study
  Country: US (occurrence: US)
  Receive Date: 20221122
  Receipt Date: 20221122
  Transmission Date: 20230113
  Serious: No
  Sender: FDA-Public Use
  Company Number: US-ABBVIE-22K-163-4532254-00

PATIENT
  Age: 49 Year
  Sex: Male

DRUGS (2)
  1. SKYRIZI [Suspect]
     Active Substance: RISANKIZUMAB-RZAA
     Indication: Psoriasis
     Dosage: WEEK 0, FORM STRENGTH: 150 MG
     Route: 058
     Dates: start: 20220907
  2. SKYRIZI [Suspect]
     Active Substance: RISANKIZUMAB-RZAA
     Dosage: WEEK 4 ,EVERY 12 WEEKS THEREAFTER, FORM STRENGTH: 150 MG
     Route: 058

REACTIONS (3)
  - Pruritus [Recovering/Resolving]
  - Middle insomnia [Unknown]
  - Pain [Unknown]

NARRATIVE: CASE EVENT DATE: 20220901
